FAERS Safety Report 4518450-1 (Version None)
Quarter: 2004Q4

REPORT INFORMATION
  Report Type: 
  Country: None (occurrence: None)
  Receive Date: 20041202
  Receipt Date: 20041119
  Transmission Date: 20050328
  Serious: Yes (Other)
  Sender: FDA-Public Use
  Company Number: 2004098590

PATIENT
  Age: 75 Year
  Sex: Female
  Weight: 144 kg

DRUGS (3)
  1. BENADRYL [Suspect]
     Indication: ARTHROPOD BITE
     Dosage: 1 KAPSEAL ONCE(JUL-2004), ORAL
     Route: 048
     Dates: start: 20040501, end: 20040901
  2. GLUCOSAMINE (GLUCOSAMINE0 [Concomitant]
  3. IBUPROFEN(IBUPROBEN) [Concomitant]

REACTIONS (2)
  - HYPERSENSITIVITY [None]
  - SWOLLEN TONGUE [None]
